FAERS Safety Report 13820229 (Version 1)
Quarter: 2017Q3

REPORT INFORMATION
  Report Type: Spontaneous
  Country: US (occurrence: US)
  Receive Date: 20170801
  Receipt Date: 20170801
  Transmission Date: 20171127
  Serious: Yes (Life-Threatening)
  Sender: FDA-Public Use
  Company Number: None

PATIENT
  Age: 68 Year
  Sex: Female
  Weight: 67.05 kg

DRUGS (1)
  1. HAIR REGROWTH TREATMENT [Suspect]
     Active Substance: MINOXIDIL
     Indication: ALOPECIA
     Dosage: ?          QUANTITY:2 DROP(S);?
     Route: 061
     Dates: start: 20170417, end: 20170729

REACTIONS (3)
  - Hypersensitivity [None]
  - Electrocardiogram abnormal [None]
  - Cardiac disorder [None]

NARRATIVE: CASE EVENT DATE: 20170729
